FAERS Safety Report 23320081 (Version 1)
Quarter: 2023Q4

REPORT INFORMATION
  Report Type: Spontaneous
  Country: US (occurrence: None)
  Receive Date: 20231219
  Receipt Date: 20231219
  Transmission Date: 20240109
  Serious: Yes (Other)
  Sender: FDA-Public Use
  Company Number: None

PATIENT
  Age: 76 Year
  Sex: Female

DRUGS (7)
  1. AMBRISENTAN [Suspect]
     Active Substance: AMBRISENTAN
     Indication: Pulmonary arterial hypertension
     Dosage: FREQUENCY : DAILY;?
     Route: 048
     Dates: start: 20230714
  2. TADALAFIL [Concomitant]
     Active Substance: TADALAFIL
  3. FUROSEMIDE [Concomitant]
     Active Substance: FUROSEMIDE
  4. NIFEDIPINE [Concomitant]
     Active Substance: NIFEDIPINE
  5. LORAZEPAM [Concomitant]
     Active Substance: LORAZEPAM
  6. mirtrazapine [Concomitant]
  7. VITAMIN D3 [Concomitant]
     Active Substance: CHOLECALCIFEROL

REACTIONS (4)
  - Tinnitus [None]
  - Headache [None]
  - Hypertension [None]
  - Anxiety [None]

NARRATIVE: CASE EVENT DATE: 20231113
